FAERS Safety Report 14233604 (Version 1)
Quarter: 2017Q4

REPORT INFORMATION
  Report Type: Report from Study
  Country: MX (occurrence: MX)
  Receive Date: 20171129
  Receipt Date: 20171129
  Transmission Date: 20180321
  Serious: Yes (Other)
  Sender: FDA-Public Use
  Company Number: PHHY2017MX173692

PATIENT
  Sex: Male

DRUGS (2)
  1. GALVUS MET [Suspect]
     Active Substance: METFORMIN HYDROCHLORIDE\VILDAGLIPTIN
     Indication: DIABETES MELLITUS INADEQUATE CONTROL
     Dosage: 1 DF (500/50 MG), QD (AT NOON)
     Route: 065
  2. METFORMIN [Suspect]
     Active Substance: METFORMIN HYDROCHLORIDE
     Indication: PRODUCT USED FOR UNKNOWN INDICATION
     Dosage: 0.5 DF, BID (HALF IN MORNING AND HALF AT NIGHT)
     Route: 065

REACTIONS (6)
  - Gouty arthritis [Unknown]
  - Wrong technique in product usage process [Recovered/Resolved]
  - Renal impairment [Unknown]
  - Arthropathy [Unknown]
  - Drug prescribing error [Recovered/Resolved]
  - Pharyngeal disorder [Unknown]
